FAERS Safety Report 22028967 (Version 1)
Quarter: 2023Q1

REPORT INFORMATION
  Report Type: Spontaneous
  Country: PT (occurrence: PT)
  Receive Date: 20230223
  Receipt Date: 20230223
  Transmission Date: 20230417
  Serious: Yes (Hospitalization)
  Sender: FDA-Public Use
  Company Number: None

PATIENT
  Age: 72 Year
  Sex: Female

DRUGS (7)
  1. PIROXICAM [Suspect]
     Active Substance: PIROXICAM
     Indication: Oedema peripheral
     Dosage: 20 MILLIGRAM DAILY; 1 PILL PER DAY,  FREQUENCY : OD,
     Dates: start: 20230111, end: 20230118
  2. PIROXICAM [Suspect]
     Active Substance: PIROXICAM
     Indication: Musculoskeletal stiffness
  3. PREDNISOLONE [Suspect]
     Active Substance: PREDNISOLONE
     Indication: Oedema peripheral
     Dosage: 20 MILLIGRAM DAILY; 1 PILL PER DAY,
     Dates: start: 20230111, end: 20230118
  4. PREDNISOLONE [Suspect]
     Active Substance: PREDNISOLONE
     Indication: Musculoskeletal stiffness
  5. CLOPIDOGREL [Concomitant]
     Active Substance: CLOPIDOGREL BISULFATE
     Indication: Product used for unknown indication
     Dosage: 75 MILLIGRAM DAILY; 75 MG PER DAY, WITH LUNCH,
  6. METOPROLOL [Concomitant]
     Active Substance: METOPROLOL
     Indication: Product used for unknown indication
     Dosage: 100 MILLIGRAM DAILY; 50 MG IN THE MORNING + 1 TABLET50 MG IN THE EVENING,
  7. ATORVASTATIN [Concomitant]
     Active Substance: ATORVASTATIN
     Indication: Product used for unknown indication
     Dosage: 40 MILLIGRAM DAILY; 40 MG PER DAY, WITH DINNER, STRENGTH : 40 MG, THERAPY START DATE AND END DATE :

REACTIONS (3)
  - Headache [Recovered/Resolved]
  - Peptic ulcer haemorrhage [Recovered/Resolved]
  - Presyncope [Recovered/Resolved]

NARRATIVE: CASE EVENT DATE: 20230118
